FAERS Safety Report 8540991-0 (Version None)
Quarter: 2012Q3

REPORT INFORMATION
  Report Type: 
  Country: None (occurrence: None)
  Receive Date: 20120726
  Receipt Date: 20110810
  Transmission Date: 20120928
  Serious: No
  Sender: FDA-Public Use
  Company Number: US-ASTRAZENECA-2011SE48291

PATIENT
  Age: 36 Year
  Sex: Female
  Weight: 40.8 kg

DRUGS (3)
  1. ZOLOFT [Concomitant]
  2. SEROQUEL XR [Suspect]
     Indication: MAJOR DEPRESSION
     Route: 048
     Dates: start: 20110501
  3. ATIVAN [Concomitant]

REACTIONS (6)
  - INSOMNIA [None]
  - MALAISE [None]
  - WITHDRAWAL SYNDROME [None]
  - MENTAL IMPAIRMENT [None]
  - ASTHENIA [None]
  - DRUG DOSE OMISSION [None]
